FAERS Safety Report 13026564 (Version 1)
Quarter: 2016Q4

REPORT INFORMATION
  Report Type: Spontaneous
  Country: JP (occurrence: JP)
  Receive Date: 20161214
  Receipt Date: 20161214
  Transmission Date: 20170207
  Serious: Yes (Other)
  Sender: FDA-Public Use
  Company Number: JP-PFIZER INC-2016569345

PATIENT
  Age: 59 Year
  Sex: Male

DRUGS (1)
  1. METRONIDAZOLE. [Suspect]
     Active Substance: METRONIDAZOLE
     Indication: CROHN^S DISEASE
     Dosage: 1 G, DAILY
     Route: 048

REACTIONS (3)
  - Vitamin B1 deficiency [Unknown]
  - Product use issue [Unknown]
  - Toxic encephalopathy [Unknown]
